FAERS Safety Report 6124320-8 (Version None)
Quarter: 2009Q1

REPORT INFORMATION
  Report Type: 
  Country: None (occurrence: None)
  Receive Date: 20090318
  Receipt Date: 20090318
  Transmission Date: 20090719
  Serious: Yes (Hospitalization)
  Sender: FDA-Public Use
  Company Number: None

PATIENT
  Sex: Male
  Weight: 79.8331 kg

DRUGS (7)
  1. INTELENCE [Suspect]
     Indication: HIV INFECTION
     Dosage: TWO TWICE A DAY PO HAVE NOT STOPPED
     Route: 048
     Dates: start: 20080928, end: 20090317
  2. TRUVADA [Concomitant]
  3. FLONASE [Concomitant]
  4. PRILOSEC [Concomitant]
  5. ALLEGRA [Concomitant]
  6. SYNTHROID [Concomitant]
  7. FOSINOPRIL [Concomitant]

REACTIONS (1)
  - CONVULSION [None]
